FAERS Safety Report 12709544 (Version 1)
Quarter: 2016Q3

REPORT INFORMATION
  Report Type: Report from Study
  Country: US (occurrence: US)
  Receive Date: 20160902
  Receipt Date: 20160902
  Transmission Date: 20161109
  Serious: No
  Sender: FDA-Public Use
  Company Number: US-AMGEN-USASL2016115401

PATIENT
  Age: 52 Year
  Sex: Female

DRUGS (1)
  1. ENBREL [Suspect]
     Active Substance: ETANERCEPT
     Indication: LORDOSIS
     Dosage: UNK UNK, QWK
     Route: 065
     Dates: start: 200212

REACTIONS (1)
  - Off label use [Not Recovered/Not Resolved]

NARRATIVE: CASE EVENT DATE: 200212
